FAERS Safety Report 14128672 (Version 1)
Quarter: 2017Q4

REPORT INFORMATION
  Report Type: Spontaneous
  Country: FR (occurrence: FR)
  Receive Date: 20171026
  Receipt Date: 20171026
  Transmission Date: 20180321
  Serious: Yes (Other)
  Sender: FDA-Public Use
  Company Number: FR-MERCK KGAA-2031545

PATIENT
  Age: 55 Year
  Sex: Female

DRUGS (3)
  1. NOVOTHYROX [Suspect]
     Active Substance: LEVOTHYROXINE SODIUM
     Indication: THYROIDECTOMY
     Route: 048
     Dates: start: 201704
  2. LEVOTHYROX 175 NF [Suspect]
     Active Substance: LEVOTHYROXINE
     Route: 048
     Dates: start: 201704
  3. ROACTEMRA [Concomitant]
     Active Substance: TOCILIZUMAB
     Dates: start: 2010

REACTIONS (13)
  - Gastrointestinal disorder [Unknown]
  - Fatigue [Unknown]
  - Chest discomfort [Unknown]
  - Blood thyroid stimulating hormone decreased [Unknown]
  - Depression [Unknown]
  - Throat tightness [Unknown]
  - Weight increased [Unknown]
  - Dyspnoea [Unknown]
  - Nausea [Unknown]
  - Dizziness [Unknown]
  - Headache [Unknown]
  - Muscle spasms [Unknown]
  - Alopecia [Unknown]

NARRATIVE: CASE EVENT DATE: 201706
